FAERS Safety Report 12693156 (Version 1)
Quarter: 2016Q3

REPORT INFORMATION
  Report Type: Spontaneous
  Country: US (occurrence: None)
  Receive Date: 20160826
  Receipt Date: 20160826
  Transmission Date: 20161109
  Serious: No
  Sender: FDA-Public Use
  Company Number: None

PATIENT

DRUGS (2)
  1. TRAMADOL TRAMADOL 50 MG [Suspect]
     Active Substance: TRAMADOL
     Route: 048
  2. TRAZODONE HYDROCHLORIDE. [Suspect]
     Active Substance: TRAZODONE HYDROCHLORIDE
     Route: 048

REACTIONS (4)
  - Somnolence [None]
  - Transcription medication error [None]
  - Wrong drug administered [None]
  - Drug dispensing error [None]
